FAERS Safety Report 11003582 (Version 10)
Quarter: 2016Q1

REPORT INFORMATION
  Report Type: Report from Study
  Country: BE (occurrence: BE)
  Receive Date: 20150409
  Receipt Date: 20160222
  Transmission Date: 20160525
  Serious: Yes (Hospitalization)
  Sender: FDA-Public Use
  Company Number: BE-ROCHE-1560713

PATIENT
  Age: 53 Year
  Sex: Female
  Weight: 87.1 kg

DRUGS (28)
  1. PERTUZUMAB [Suspect]
     Active Substance: PERTUZUMAB
     Indication: HER-2 POSITIVE BREAST CANCER
     Dosage: LAODING DOSE?LAST DOSE PRIOR TO SAE DEHYDRATION AND FIRST EPISODE OF FEBRILE NEUTROPENIA: 25/MAR/201
     Route: 042
     Dates: start: 20150325
  2. PANTOMED (BELGIUM) [Concomitant]
     Indication: PROPHYLAXIS
     Route: 065
     Dates: start: 20150402, end: 20150916
  3. LITICAN [Concomitant]
     Active Substance: ALIZAPRIDE HYDROCHLORIDE
     Indication: PROPHYLAXIS
     Route: 065
     Dates: start: 20150422, end: 20150728
  4. ZYRTEC [Concomitant]
     Active Substance: CETIRIZINE HYDROCHLORIDE
     Route: 065
     Dates: start: 20150506, end: 20150506
  5. CLOBEX [Concomitant]
     Active Substance: CLOBETASOL PROPIONATE
     Route: 065
     Dates: start: 20150402, end: 20150414
  6. TRASTUZUMAB [Suspect]
     Active Substance: TRASTUZUMAB
     Dosage: MAINTENANCE DOSE
     Route: 042
     Dates: start: 20150415
  7. DOCETAXEL. [Suspect]
     Active Substance: DOCETAXEL
     Dosage: INTENDED AUC: 60MG/M2
     Route: 042
     Dates: start: 20150526
  8. CARBOPLATIN. [Suspect]
     Active Substance: CARBOPLATIN
     Indication: HER-2 POSITIVE BREAST CANCER
     Dosage: INTENDED AUC 6?LAST DOSE PRIOR TO SAE DEHYDRATION AND FIRST EPISODE OF FEBRILE NEUTROPENIA: 25/MAR/2
     Route: 042
     Dates: start: 20150325
  9. CARBOPLATIN. [Suspect]
     Active Substance: CARBOPLATIN
     Dosage: LAST DOSE PRIOR TO SAE SECOND EPISODE OF FEBRILE NEUTROPENIA: 06/MAY/2015
     Route: 042
  10. PERTUZUMAB [Suspect]
     Active Substance: PERTUZUMAB
     Dosage: MAINTANENCE DOSE
     Route: 042
     Dates: start: 20150415
  11. DOCETAXEL. [Suspect]
     Active Substance: DOCETAXEL
     Indication: HER-2 POSITIVE BREAST CANCER
     Dosage: INTENDED AUC: 75MG/M2?LAST DOSE PRIOR TO SAE DEHYDRATION AND FIRST EPISODE OF FEBRILE NEUTROPENIA: 2
     Route: 042
     Dates: start: 20150325
  12. IV FLUIDS, SALINE [Concomitant]
     Route: 065
     Dates: start: 20150403, end: 20150405
  13. METRONIDE [Concomitant]
     Route: 061
     Dates: start: 20150402, end: 20150415
  14. TEMESTA (BELGIUM) [Concomitant]
     Indication: PROPHYLAXIS
  15. DEXAMETHASON [Concomitant]
     Active Substance: DEXAMETHASONE
     Route: 065
     Dates: start: 20150324, end: 20150709
  16. NEULASTA [Concomitant]
     Active Substance: PEGFILGRASTIM
     Indication: PROPHYLAXIS
     Route: 065
     Dates: start: 20150617, end: 20150617
  17. TRASTUZUMAB [Suspect]
     Active Substance: TRASTUZUMAB
     Indication: HER-2 POSITIVE BREAST CANCER
     Dosage: LOADING DOSE?LAST DOSE PRIOR TO SAE DEHYDRATION AND FIRST EPISODE OF FEBRILE NEUTROPENIA: 25/MAR/201
     Route: 042
     Dates: start: 20150325
  18. AUGMENTIN [Concomitant]
     Active Substance: AMOXICILLIN\CLAVULANATE POTASSIUM
     Route: 065
     Dates: start: 20150403, end: 20150411
  19. CIPROFLOXACINE [Concomitant]
     Active Substance: CIPROFLOXACIN
     Route: 065
     Dates: start: 20150403, end: 20150405
  20. TRASTUZUMAB [Suspect]
     Active Substance: TRASTUZUMAB
     Route: 042
  21. NEULASTA [Concomitant]
     Active Substance: PEGFILGRASTIM
     Route: 065
     Dates: start: 20150708, end: 20150708
  22. EMLA [Concomitant]
     Active Substance: LIDOCAINE\PRILOCAINE
     Route: 065
     Dates: start: 20150324
  23. AUGMENTIN [Concomitant]
     Active Substance: AMOXICILLIN\CLAVULANATE POTASSIUM
     Route: 065
     Dates: start: 20150516, end: 20150520
  24. PARACETAMOL [Concomitant]
     Active Substance: ACETAMINOPHEN
     Route: 065
     Dates: start: 20150403, end: 20150404
  25. APREPITANT. [Concomitant]
     Active Substance: APREPITANT
     Route: 065
     Dates: start: 20150325, end: 20150710
  26. MOTILIUM [Concomitant]
     Active Substance: DOMPERIDONE
     Route: 065
     Dates: start: 20150403, end: 20150403
  27. ZANTAC [Concomitant]
     Active Substance: RANITIDINE HYDROCHLORIDE
     Route: 065
     Dates: start: 20150506, end: 20150506
  28. ONDANSETRON [Concomitant]
     Active Substance: ONDANSETRON
     Route: 065
     Dates: start: 20150325, end: 20150708

REACTIONS (2)
  - Dehydration [Recovered/Resolved]
  - Febrile neutropenia [Recovered/Resolved]

NARRATIVE: CASE EVENT DATE: 20150403
